FAERS Safety Report 5667125-4 (Version None)
Quarter: 2008Q1

REPORT INFORMATION
  Report Type: 
  Country: None (occurrence: None)
  Receive Date: 20080315
  Receipt Date: 20080109
  Transmission Date: 20080703
  Serious: No
  Sender: FDA-Public Use
  Company Number: US-ABBOTT-08P-163-0433505-00

PATIENT
  Sex: Male
  Weight: 56.75 kg

DRUGS (1)
  1. HUMIRA [Suspect]
     Indication: PSORIATIC ARTHROPATHY
     Route: 058
     Dates: start: 20060101, end: 20070901

REACTIONS (4)
  - LYMPHADENITIS [None]
  - LYMPHADENOPATHY [None]
  - PNEUMONIA [None]
  - PSORIATIC ARTHROPATHY [None]
